FAERS Safety Report 5075829-X (Version None)
Quarter: 2006Q3

REPORT INFORMATION
  Report Type: 
  Country: None (occurrence: None)
  Receive Date: 20060809
  Receipt Date: 20060802
  Transmission Date: 20061208
  Serious: Yes (Other)
  Sender: FDA-Public Use
  Company Number: 001#1#2006-00313

PATIENT
  Age: 25 Year
  Sex: Female

DRUGS (3)
  1. ADVAIR DISKUS 100/50 [Suspect]
     Dosage: 300UG UNKNOWN
     Route: 055
     Dates: start: 20040901
  2. ALLERGOSPASMIN [Concomitant]
     Route: 055
  3. THEOPHYLLINE [Concomitant]
     Route: 065

REACTIONS (2)
  - ABORTION SPONTANEOUS [None]
  - DRUG EXPOSURE DURING PREGNANCY [None]
